FAERS Safety Report 5753550-X (Version None)
Quarter: 2008Q2

REPORT INFORMATION
  Report Type: 
  Country: None (occurrence: None)
  Receive Date: 20080530
  Receipt Date: 20080522
  Transmission Date: 20081010
  Serious: Yes (Hospitalization)
  Sender: FDA-Public Use
  Company Number: FR-AVENTIS-200811482FR

PATIENT
  Age: 60 Year
  Sex: Female

DRUGS (23)
  1. OFLOCET                            /00731801/ [Suspect]
     Dates: end: 20080318
  2. CALCIPARINE [Suspect]
     Route: 048
     Dates: start: 20080221
  3. INIPOMP                            /01263201/ [Suspect]
     Dates: end: 20080327
  4. ARANESP [Suspect]
  5. AUGMENTIN '125' [Suspect]
     Dates: start: 20080226, end: 20080318
  6. IMUREL                             /00001501/ [Suspect]
     Route: 048
     Dates: end: 20080221
  7. IMUREL                             /00001501/ [Suspect]
     Dates: start: 20080225
  8. LOVENOX [Suspect]
     Route: 042
     Dates: start: 20080304, end: 20080310
  9. SOLUPRED                           /00016201/ [Concomitant]
  10. NEORAL [Concomitant]
  11. ROCALTROL [Concomitant]
  12. IRBESARTAN [Concomitant]
  13. XOLAAM [Concomitant]
  14. FUROSEMIDE [Concomitant]
  15. ASASANTINE [Concomitant]
  16. AMLOR [Concomitant]
  17. DETENSIEL                          /00802601/ [Concomitant]
  18. HYPERIUM                           /00939801/ [Concomitant]
  19. HALDOL [Concomitant]
  20. NOZINAN                            /00038601/ [Concomitant]
  21. ATARAX [Concomitant]
  22. BIOFER                             /00023501/ [Concomitant]
  23. HEMIGOXINE [Concomitant]

REACTIONS (6)
  - CHOLESTASIS [None]
  - EOSINOPHILIA [None]
  - PRURITUS [None]
  - RASH MACULAR [None]
  - THROMBOCYTOPENIA [None]
  - TOXIC SKIN ERUPTION [None]
